FAERS Safety Report 10170534 (Version 1)
Quarter: 2014Q2

REPORT INFORMATION
  Report Type: Spontaneous
  Country: US (occurrence: US)
  Receive Date: 20140513
  Receipt Date: 20140513
  Transmission Date: 20141212
  Serious: No
  Sender: FDA-Public Use
  Company Number: US-009507513-1405USA000340

PATIENT
  Age: 18 Year
  Sex: Female
  Weight: 65.31 kg

DRUGS (1)
  1. NEXPLANON [Suspect]
     Indication: CONTRACEPTION
     Dosage: 68 MG, 1 ROD IN HER LEFT ARM
     Route: 059
     Dates: start: 201304

REACTIONS (3)
  - Road traffic accident [Unknown]
  - Hypoaesthesia [Unknown]
  - Pain in extremity [Unknown]
